FAERS Safety Report 7986568 (Version 14)
Quarter: 2014Q3

REPORT INFORMATION
  Report Type: Report from Study
  Country: BR (occurrence: BR)
  Receive Date: 20110610
  Receipt Date: 20140912
  Transmission Date: 20150326
  Serious: Yes (Hospitalization, Disabling, Other)
  Sender: FDA-Public Use
  Company Number: BR-ROCHE-781056

PATIENT
  Age: 67 Year
  Sex: Female
  Weight: 74 kg

DRUGS (27)
  1. NEXIUM [Concomitant]
     Active Substance: ESOMEPRAZOLE MAGNESIUM
     Route: 065
  2. MABTHERA [Suspect]
     Active Substance: RITUXIMAB
     Route: 042
  3. MABTHERA [Suspect]
     Active Substance: RITUXIMAB
     Route: 042
  4. PREDNISONE. [Concomitant]
     Active Substance: PREDNISONE
     Route: 048
  5. MABTHERA [Suspect]
     Active Substance: RITUXIMAB
     Indication: RHEUMATOID ARTHRITIS
     Dosage: DOSE: 100MG/10 ML, DATE OF LATEST DOSE:15/AUG/2013.
     Route: 042
  6. ULTRACET [Suspect]
     Active Substance: ACETAMINOPHEN\TRAMADOL HYDROCHLORIDE
     Indication: RHEUMATOID ARTHRITIS
     Route: 065
     Dates: start: 2011, end: 2011
  7. SCAFLAM [Concomitant]
     Active Substance: NIMESULIDE
     Route: 065
  8. OMEPRAZOLE. [Concomitant]
     Active Substance: OMEPRAZOLE
     Dosage: ONE TABLET IN THE MORNING AND ONE TABLET IN THE NIGHT.
     Route: 065
  9. MABTHERA [Suspect]
     Active Substance: RITUXIMAB
     Route: 042
  10. CORTISONE [Concomitant]
     Active Substance: CORTISONE\HYDROCORTISONE
  11. MABTHERA [Suspect]
     Active Substance: RITUXIMAB
     Route: 042
  12. MABTHERA [Suspect]
     Active Substance: RITUXIMAB
     Route: 042
  13. MABTHERA [Suspect]
     Active Substance: RITUXIMAB
     Route: 042
  14. MABTHERA [Suspect]
     Active Substance: RITUXIMAB
     Route: 042
  15. MABTHERA [Suspect]
     Active Substance: RITUXIMAB
     Route: 042
  16. DIPYRONE [Concomitant]
     Active Substance: DIPYRONE
  17. PREDNISONE. [Concomitant]
     Active Substance: PREDNISONE
     Dosage: DOSE INCREASED
     Route: 048
     Dates: start: 201108
  18. METHOTREXATE [Concomitant]
     Active Substance: METHOTREXATE
  19. MAGNESIUM HYDROXIDE. [Concomitant]
     Active Substance: MAGNESIUM HYDROXIDE
  20. MABTHERA [Suspect]
     Active Substance: RITUXIMAB
     Route: 042
  21. ENALAPRIL [Concomitant]
     Active Substance: ENALAPRIL
     Route: 065
  22. MABTHERA [Suspect]
     Active Substance: RITUXIMAB
     Route: 042
  23. MABTHERA [Suspect]
     Active Substance: RITUXIMAB
     Route: 042
  24. ACTEMRA [Suspect]
     Active Substance: TOCILIZUMAB
     Indication: RHEUMATOID ARTHRITIS
     Route: 065
     Dates: start: 20110524, end: 20110929
  25. FOLIC ACID. [Concomitant]
     Active Substance: FOLIC ACID
     Route: 065
  26. ROXICAM [Concomitant]
     Route: 065
  27. PARIET [Concomitant]
     Active Substance: RABEPRAZOLE SODIUM
     Route: 065

REACTIONS (36)
  - Abdominal pain upper [Recovering/Resolving]
  - Pain [Unknown]
  - Hot flush [Unknown]
  - Burning sensation [Not Recovered/Not Resolved]
  - Pruritus generalised [Not Recovered/Not Resolved]
  - Pain in extremity [Recovering/Resolving]
  - Cerebrovascular accident [Unknown]
  - Arthritis [Recovering/Resolving]
  - Stomatitis [Not Recovered/Not Resolved]
  - Abdominal pain upper [Not Recovered/Not Resolved]
  - Leg amputation [Unknown]
  - Gastric disorder [Not Recovered/Not Resolved]
  - Leg amputation [Unknown]
  - Dysentery [Not Recovered/Not Resolved]
  - Arthralgia [Recovering/Resolving]
  - Arteriosclerosis [Not Recovered/Not Resolved]
  - Joint injury [Not Recovered/Not Resolved]
  - Dry mouth [Not Recovered/Not Resolved]
  - Dyspepsia [Recovering/Resolving]
  - Blood pressure fluctuation [Unknown]
  - Abdominal pain [Not Recovered/Not Resolved]
  - Arthralgia [Not Recovered/Not Resolved]
  - Cardiovascular disorder [Unknown]
  - Drug ineffective [Unknown]
  - Pain [Not Recovered/Not Resolved]
  - Pruritus [Not Recovered/Not Resolved]
  - Cataract [Not Recovered/Not Resolved]
  - Vomiting [Not Recovered/Not Resolved]
  - Weight decreased [Unknown]
  - Rheumatoid arthritis [Not Recovered/Not Resolved]
  - Rheumatoid arthritis [Not Recovered/Not Resolved]
  - Peripheral arterial occlusive disease [Not Recovered/Not Resolved]
  - Pain [Not Recovered/Not Resolved]
  - Gait disturbance [Recovered/Resolved]
  - Influenza [Recovered/Resolved]
  - Hypersensitivity [Unknown]

NARRATIVE: CASE EVENT DATE: 201012
